FAERS Safety Report 23251359 (Version 2)
Quarter: 2023Q4

REPORT INFORMATION
  Report Type: Spontaneous
  Country: US (occurrence: US)
  Receive Date: 20231201
  Receipt Date: 20231205
  Transmission Date: 20240109
  Serious: Yes (Other)
  Sender: FDA-Public Use
  Company Number: US-PFIZER INC-PV202300189910

PATIENT
  Age: 28 Year
  Sex: Female

DRUGS (4)
  1. SPIRONOLACTONE [Suspect]
     Active Substance: SPIRONOLACTONE
     Dosage: 50 MG, DAILY
  2. LASIX [Suspect]
     Active Substance: FUROSEMIDE
     Dosage: 80 MG, 2X/DAY
  3. METOLAZONE [Suspect]
     Active Substance: METOLAZONE
     Dosage: 2.5 MG, 2X/DAY
  4. POTASSIUM [Concomitant]
     Active Substance: POTASSIUM
     Dosage: 80 MEQ
     Route: 048

REACTIONS (2)
  - Electrolyte imbalance [Recovered/Resolved]
  - Haemodynamic instability [Recovered/Resolved]
